FAERS Safety Report 9890981 (Version 1)
Quarter: 2014Q1

REPORT INFORMATION
  Report Type: Spontaneous
  Country: FR (occurrence: None)
  Receive Date: 20140210
  Receipt Date: 20140210
  Transmission Date: 20141002
  Serious: Yes (Hospitalization)
  Sender: FDA-Public Use
  Company Number: ADR-2014-00216

PATIENT
  Age: 63 Year
  Sex: Male

DRUGS (2)
  1. BACLOFEN [Suspect]
     Indication: ALCOHOL USE
     Dosage: 120 MG/DAY
  2. ALCOHOL (ETHANOL) [Suspect]
     Dosage: 10 DRINKS/DAY

REACTIONS (12)
  - Diabetes mellitus [None]
  - Vomiting [None]
  - Confusional state [None]
  - Dehydration [None]
  - Hyperthermia [None]
  - Blood potassium decreased [None]
  - White blood cell count increased [None]
  - C-reactive protein increased [None]
  - Agitation [None]
  - Alcohol withdrawal syndrome [None]
  - Disorientation [None]
  - Drug withdrawal syndrome [None]
